FAERS Safety Report 4698706-2 (Version None)
Quarter: 2005Q2

REPORT INFORMATION
  Report Type: 
  Country: None (occurrence: None)
  Receive Date: 20050622
  Receipt Date: 20050613
  Transmission Date: 20051028
  Serious: Yes (Other)
  Sender: FDA-Public Use
  Company Number: HQWYE467715JUN05

PATIENT
  Age: 50 Year
  Sex: Female
  Weight: 71.28 kg

DRUGS (1)
  1. PREMPRO [Suspect]
     Indication: HOT FLUSH
     Dosage: 0.625MG/2.5MG TABLET DAILY, ORAL
     Route: 048
     Dates: start: 20041001

REACTIONS (3)
  - RETINAL DETACHMENT [None]
  - RETINAL OEDEMA [None]
  - RETINAL TEAR [None]
